FAERS Safety Report 23124728 (Version 1)
Quarter: 2023Q4

REPORT INFORMATION
  Report Type: Report from Study
  Country: US (occurrence: US)
  Receive Date: 20231030
  Receipt Date: 20231030
  Transmission Date: 20240110
  Serious: Yes (Hospitalization, Other)
  Sender: FDA-Public Use
  Company Number: US-ABBVIE-5463645

PATIENT
  Age: 68 Year
  Sex: Female
  Weight: 64.41 kg

DRUGS (1)
  1. SYNTHROID [Suspect]
     Active Substance: LEVOTHYROXINE SODIUM
     Indication: Autoimmune thyroiditis
     Dosage: FORM STRENGTH: 75 MICROGRAM
     Route: 048
     Dates: start: 2003

REACTIONS (4)
  - Cerebrovascular accident [Recovering/Resolving]
  - Carotid artery occlusion [Recovering/Resolving]
  - Cerebral thrombosis [Recovering/Resolving]
  - Fine motor skill dysfunction [Not Recovered/Not Resolved]

NARRATIVE: CASE EVENT DATE: 20230208
